FAERS Safety Report 9440918 (Version 1)
Quarter: 2013Q3

REPORT INFORMATION
  Report Type: Report from Study
  Country: MX (occurrence: MX)
  Receive Date: 20130805
  Receipt Date: 20130805
  Transmission Date: 20140515
  Serious: Yes (Hospitalization)
  Sender: FDA-Public Use
  Company Number: PHHY2013MX083605

PATIENT
  Age: 71 Year
  Sex: Female

DRUGS (10)
  1. EXFORGE HCT [Suspect]
     Indication: HYPERTENSION
     Dosage: 1 DF, DAILY
     Route: 048
     Dates: start: 201304, end: 201304
  2. CLOPIDOGREL [Concomitant]
     Indication: CEREBROVASCULAR ACCIDENT PROPHYLAXIS
     Dosage: 1 DF, DAILY
     Dates: start: 201303
  3. FLUOXETINE [Concomitant]
     Indication: DEPRESSION
     Dosage: 1 DF, DAILY
     Dates: start: 201305
  4. SENOKOT                                 /UNK/ [Concomitant]
     Indication: CONSTIPATION
     Dosage: 1 DF, DAILY
  5. MIRTAZAPINE [Concomitant]
     Indication: SLEEP DISORDER
     Dosage: 1 DF, DAILY
     Dates: start: 201305
  6. CLONAZEPAM [Concomitant]
     Indication: SEDATION
     Dosage: 8 DF, DAILY
  7. CLONAZEPAM [Concomitant]
     Indication: SLEEP DISORDER
  8. MOMETASONE [Concomitant]
     Indication: NASAL DISORDER
     Dosage: 1 DF, DAILY
     Dates: start: 201307
  9. SEA WATER [Concomitant]
     Indication: RHINORRHOEA
     Dosage: 3 SHOTS, DAILY
     Dates: start: 201307
  10. REFRESH TEARS [Concomitant]
     Indication: EYE DISORDER

REACTIONS (7)
  - Blood sodium abnormal [Recovered/Resolved]
  - Dehydration [Recovered/Resolved]
  - Blood electrolytes abnormal [Recovered/Resolved]
  - Hypertension [Recovered/Resolved]
  - Memory impairment [Unknown]
  - Gastritis [Recovering/Resolving]
  - Blood pressure decreased [Recovering/Resolving]
